FAERS Safety Report 7422632-9 (Version None)
Quarter: 2011Q2

REPORT INFORMATION
  Report Type: 
  Country: None (occurrence: None)
  Receive Date: 20110407
  Receipt Date: 20110403
  Transmission Date: 20111010
  Serious: Yes (Other)
  Sender: FDA-Public Use
  Company Number: CIO11000795

PATIENT
  Age: 77 Year
  Sex: Female
  Weight: 62.1 kg

DRUGS (7)
  1. PREMARIN [Concomitant]
  2. SYNTHROID [Concomitant]
  3. TYLENOL /00020001/ (PARACETAMOL) [Concomitant]
  4. CALCIUM (CALCIUM) [Concomitant]
  5. VITAMINS /90003601/ [Concomitant]
  6. METAMUCIL SUGARED COARSEMILLED ORIGINAL TEXTURE, UNFLVR OR REGULAR FLV [Suspect]
     Indication: NUTRITIONAL SUPPORT
     Dosage: 1 TSP, 1.DAY, ORAL
     Route: 048
     Dates: start: 20110108, end: 20110110
  7. EYE DROP [Concomitant]

REACTIONS (9)
  - CHEST PAIN [None]
  - ASTHENIA [None]
  - NAUSEA [None]
  - DYSPNOEA [None]
  - HEART RATE INCREASED [None]
  - FOREIGN BODY [None]
  - SUPRAVENTRICULAR TACHYCARDIA [None]
  - ERUCTATION [None]
  - PALPITATIONS [None]
